FAERS Safety Report 4760341-5 (Version None)
Quarter: 2005Q3

REPORT INFORMATION
  Report Type: 
  Country: None (occurrence: None)
  Receive Date: 20050902
  Receipt Date: 20040122
  Transmission Date: 20060218
  Serious: Yes (Hospitalization, Other)
  Sender: FDA-Public Use
  Company Number: A0495066B

PATIENT
  Age: 46 Year
  Sex: Female

DRUGS (4)
  1. GOODY POWDER [Suspect]
     Route: 048
     Dates: start: 20010209
  2. DEXATRIM [Suspect]
     Route: 048
     Dates: start: 20000808, end: 20010208
  3. CLARITIN [Concomitant]
     Dates: start: 20000201
  4. CONTAC 12 HOUR [Concomitant]
     Route: 048
     Dates: start: 20010209, end: 20010209

REACTIONS (27)
  - AGNOSIA [None]
  - AMNESIA [None]
  - ANAEMIA [None]
  - ANXIETY [None]
  - BLOOD PRESSURE INCREASED [None]
  - CEREBRAL ARTERY OCCLUSION [None]
  - CHEST PAIN [None]
  - DISTURBANCE IN ATTENTION [None]
  - DIZZINESS [None]
  - DYSARTHRIA [None]
  - DYSPNOEA [None]
  - ELECTROCARDIOGRAM QRS COMPLEX PROLONGED [None]
  - EPISTAXIS [None]
  - FALL [None]
  - HEADACHE [None]
  - HEART RATE IRREGULAR [None]
  - HEMIPARESIS [None]
  - HYPOAESTHESIA [None]
  - MITRAL VALVE INCOMPETENCE [None]
  - NAUSEA [None]
  - NERVOUS SYSTEM DISORDER [None]
  - NYSTAGMUS [None]
  - PARAESTHESIA [None]
  - SYNCOPE [None]
  - TRICUSPID VALVE INCOMPETENCE [None]
  - VISION BLURRED [None]
  - VISUAL ACUITY REDUCED [None]
